FAERS Safety Report 17207221 (Version 1)
Quarter: 2019Q4

REPORT INFORMATION
  Report Type: Spontaneous
  Country: US (occurrence: US)
  Receive Date: 20191227
  Receipt Date: 20191227
  Transmission Date: 20200122
  Serious: No
  Sender: FDA-Public Use
  Company Number: US-009507513-1912USA008375

PATIENT
  Sex: Female

DRUGS (1)
  1. JANUMET [Suspect]
     Active Substance: METFORMIN HYDROCHLORIDE\SITAGLIPTIN PHOSPHATE
     Dosage: 50/1000 MG, TWICE A DAY
     Route: 048

REACTIONS (3)
  - Incorrect dose administered [Unknown]
  - No adverse event [Unknown]
  - Product dose omission [Unknown]

NARRATIVE: CASE EVENT DATE: 20191215
